FAERS Safety Report 14547264 (Version 4)
Quarter: 2020Q3

REPORT INFORMATION
  Report Type: Spontaneous
  Country: ES (occurrence: ES)
  Receive Date: 20180219
  Receipt Date: 20200910
  Transmission Date: 20201102
  Serious: Yes (Death, Hospitalization, Other)
  Sender: FDA-Public Use
  Company Number: ES-MYLANLABS-2018M1009399

PATIENT
  Age: 42 Year
  Sex: Male

DRUGS (5)
  1. TRYPTOPHAN [Suspect]
     Active Substance: TRYPTOPHAN
     Indication: PRODUCT USED FOR UNKNOWN INDICATION
     Dosage: 600 MG, QD
     Route: 065
  2. TAURINE [Suspect]
     Active Substance: TAURINE
     Indication: PRODUCT USED FOR UNKNOWN INDICATION
     Dosage: 1/2 L OF STIMULATING TAURINE?RICH DRINK(REDBULL)
     Route: 065
  3. ALCOHOL. [Suspect]
     Active Substance: ALCOHOL
     Indication: PRODUCT USED FOR UNKNOWN INDICATION
     Dosage: UNK
  4. CITALOPRAM [Suspect]
     Active Substance: CITALOPRAM HYDROBROMIDE
     Dosage: 480 MG, TOTAL
     Route: 048
  5. CITALOPRAM [Suspect]
     Active Substance: CITALOPRAM HYDROBROMIDE
     Indication: DEPRESSION
     Dosage: 20 MG, QD
     Route: 048

REACTIONS (16)
  - Completed suicide [Fatal]
  - Multiple organ dysfunction syndrome [Fatal]
  - Cell death [Fatal]
  - Food interaction [Fatal]
  - Lactic acidosis [Fatal]
  - Rhabdomyolysis [Fatal]
  - Leukopenia [Fatal]
  - Intentional overdose [Fatal]
  - Toxicity to various agents [Fatal]
  - Acute kidney injury [Fatal]
  - Alcohol interaction [Fatal]
  - Shock [Fatal]
  - Disseminated intravascular coagulation [Fatal]
  - Hypoglycaemia [Fatal]
  - Serotonin syndrome [Fatal]
  - Acute respiratory failure [Fatal]
